FAERS Safety Report 5072761-2 (Version None)
Quarter: 2006Q3

REPORT INFORMATION
  Report Type: 
  Country: None (occurrence: None)
  Receive Date: 20060807
  Receipt Date: 19990407
  Transmission Date: 20061208
  Serious: Yes (Death, Other)
  Sender: FDA-Public Use
  Company Number: LIT/99/00112/SIM

PATIENT
  Age: 28 Year
  Sex: Female

DRUGS (2)
  1. CYCLOSPORINE [Suspect]
     Indication: HEART AND LUNG TRANSPLANT
     Dosage: UNSPECIFIED
     Route: 048
  2. AZATHIOPRINE [Suspect]
     Indication: HEART AND LUNG TRANSPLANT
     Dosage: UNSPECIFIED
     Route: 048

REACTIONS (9)
  - CAESAREAN SECTION [None]
  - DRUG EXPOSURE DURING PREGNANCY [None]
  - HYPERTENSION [None]
  - LOWER RESPIRATORY TRACT INFECTION [None]
  - LUNG TRANSPLANT [None]
  - LUNG TRANSPLANT REJECTION [None]
  - OBLITERATIVE BRONCHIOLITIS [None]
  - PREMATURE LABOUR [None]
  - PULMONARY FUNCTION TEST DECREASED [None]
